FAERS Safety Report 17216202 (Version 5)
Quarter: 2021Q2

REPORT INFORMATION
  Report Type: Spontaneous
  Country: US (occurrence: US)
  Receive Date: 20191230
  Receipt Date: 20210430
  Transmission Date: 20210716
  Serious: Yes (Other)
  Sender: FDA-Public Use
  Company Number: US-GILEAD-2019-0444740

PATIENT
  Age: 35 Year
  Sex: Male

DRUGS (3)
  1. VIREAD [Suspect]
     Active Substance: TENOFOVIR DISOPROXIL FUMARATE
     Indication: HIV INFECTION
     Dosage: UNK
     Route: 048
     Dates: start: 201507, end: 201906
  2. BIKTARVY [Concomitant]
     Active Substance: BICTEGRAVIR SODIUM\EMTRICITABINE\TENOFOVIR ALAFENAMIDE FUMARATE
  3. TRUVADA [Suspect]
     Active Substance: EMTRICITABINE\TENOFOVIR DISOPROXIL FUMARATE
     Indication: HIV INFECTION
     Dosage: UNK
     Route: 048
     Dates: start: 201507, end: 201910

REACTIONS (10)
  - Emotional distress [Unknown]
  - Osteonecrosis [Unknown]
  - Tooth loss [Recovered/Resolved]
  - Bone density decreased [Unknown]
  - Pain [Unknown]
  - Chronic kidney disease [Not Recovered/Not Resolved]
  - Bone loss [Not Recovered/Not Resolved]
  - Anxiety [Unknown]
  - Economic problem [Unknown]
  - Anhedonia [Unknown]

NARRATIVE: CASE EVENT DATE: 201602
